FAERS Safety Report 12969891 (Version 1)
Quarter: 2016Q4

REPORT INFORMATION
  Report Type: Spontaneous
  Country: CN (occurrence: CN)
  Receive Date: 20161123
  Receipt Date: 20161123
  Transmission Date: 20170207
  Serious: Yes (Death, Hospitalization, Other)
  Sender: FDA-Public Use
  Company Number: CN-MYLANLABS-2016M1050181

PATIENT

DRUGS (5)
  1. ANTINEOPLASTIC AGENTS [Suspect]
     Active Substance: UNSPECIFIED INGREDIENT
     Indication: HEPATOCELLULAR CARCINOMA
     Dosage: 10MG
     Route: 050
  2. FLUOROURACIL. [Suspect]
     Active Substance: FLUOROURACIL
     Indication: HEPATOCELLULAR CARCINOMA
     Dosage: 500MG
     Route: 050
  3. IODIZED OIL [Concomitant]
     Active Substance: IODIZED OIL
     Indication: PRODUCT USED FOR UNKNOWN INDICATION
     Route: 050
  4. GELATIN [Concomitant]
     Active Substance: GELATIN
     Indication: PRODUCT USED FOR UNKNOWN INDICATION
     Route: 050
  5. EPIRUBICIN [Suspect]
     Active Substance: EPIRUBICIN
     Indication: HEPATOCELLULAR CARCINOMA
     Dosage: 30MG
     Route: 050

REACTIONS (2)
  - Tumour lysis syndrome [Fatal]
  - Multiple organ dysfunction syndrome [Fatal]
